FAERS Safety Report 4307507-6 (Version None)
Quarter: 2004Q1

REPORT INFORMATION
  Report Type: 
  Country: None (occurrence: None)
  Receive Date: 20040226
  Receipt Date: 20040220
  Transmission Date: 20041129
  Serious: Yes (Hospitalization)
  Sender: FDA-Public Use
  Company Number: 2003182384DE

PATIENT
  Age: 26 Year
  Sex: Female
  Weight: 51.2 kg

DRUGS (2)
  1. GENOTROPIN [Suspect]
     Indication: CROHN'S DISEASE
     Dosage: 3.2 IU, QD, SUBCUTANEOUS
     Route: 058
  2. AZATHIOPRINE [Concomitant]

REACTIONS (1)
  - ILEAL PERFORATION [None]
